FAERS Safety Report 14018266 (Version 2)
Quarter: 2017Q4

REPORT INFORMATION
  Report Type: Spontaneous
  Country: KR (occurrence: KR)
  Receive Date: 20170928
  Receipt Date: 20171101
  Transmission Date: 20180321
  Serious: Yes (Death, Other)
  Sender: FDA-Public Use
  Company Number: KR-ACTELION-A-CH2017-159942

PATIENT
  Age: 30 Year
  Sex: Female

DRUGS (1)
  1. OPSUMIT [Suspect]
     Active Substance: MACITENTAN
     Indication: PULMONARY ARTERIAL HYPERTENSION
     Route: 048

REACTIONS (5)
  - Pulmonary arterial hypertension [Fatal]
  - Ascites [Fatal]
  - Cardiac valve rupture [Unknown]
  - Condition aggravated [Fatal]
  - Hepatic congestion [Fatal]
